FAERS Safety Report 25166549 (Version 1)
Quarter: 2025Q2

REPORT INFORMATION
  Report Type: Spontaneous
  Country: CN (occurrence: CN)
  Receive Date: 20250407
  Receipt Date: 20250407
  Transmission Date: 20250717
  Serious: Yes (Life-Threatening)
  Sender: SHANGHAI HENGRUI PHARMACEUTICAL
  Company Number: CN-Shanghai Hengrui Pharmaceutical Co., Ltd.-2174403

PATIENT
  Age: 33 Year
  Sex: Female
  Weight: 80 kg

DRUGS (5)
  1. DESFLURANE [Suspect]
     Active Substance: DESFLURANE
     Indication: Maintenance of anaesthesia
     Dates: start: 20250317, end: 20250317
  2. REMIMAZOLAM TOSYLATE [Suspect]
     Active Substance: REMIMAZOLAM TOSYLATE
     Dates: start: 20250317, end: 20250317
  3. SODIUM CHLORIDE [Concomitant]
     Active Substance: SODIUM CHLORIDE
     Dates: start: 20250317, end: 20250317
  4. ROCURONIUM [Suspect]
     Active Substance: ROCURONIUM BROMIDE
     Dates: start: 20250317, end: 20250317
  5. REMIFENTANIL HYDROCHLORIDE [Suspect]
     Active Substance: REMIFENTANIL HYDROCHLORIDE
     Dates: start: 20250317, end: 20250317

REACTIONS (1)
  - Anaphylactic shock [Recovering/Resolving]

NARRATIVE: CASE EVENT DATE: 20250317
